FAERS Safety Report 19067325 (Version 1)
Quarter: 2021Q1

REPORT INFORMATION
  Report Type: Spontaneous
  Country: IT (occurrence: IT)
  Receive Date: 20210329
  Receipt Date: 20210329
  Transmission Date: 20210420
  Serious: Yes (Hospitalization)
  Sender: FDA-Public Use
  Company Number: IT-ALVOGEN-2021-ALVOGEN-116801

PATIENT
  Age: 3 Month

DRUGS (1)
  1. FLECAINIDE [Suspect]
     Active Substance: FLECAINIDE
     Indication: ATRIAL TACHYCARDIA
     Dosage: 3.5 MG/KG/DIE DIVIDED IN 3 DOSES

REACTIONS (7)
  - Overdose [Unknown]
  - Product administration error [Unknown]
  - Toxicity to various agents [Unknown]
  - Decreased appetite [Recovered/Resolved]
  - Electrocardiogram QRS complex prolonged [Recovered/Resolved]
  - Somnolence [Recovered/Resolved]
  - Conduction disorder [Recovered/Resolved]
